FAERS Safety Report 15751260 (Version 1)
Quarter: 2018Q4

REPORT INFORMATION
  Report Type: Spontaneous
  Country: US (occurrence: US)
  Receive Date: 20181221
  Receipt Date: 20181221
  Transmission Date: 20190205
  Serious: Yes (Hospitalization)
  Sender: FDA-Public Use
  Company Number: None

PATIENT
  Age: 48 Year
  Sex: Female
  Weight: 85.5 kg

DRUGS (16)
  1. SERTRALINE [Concomitant]
     Active Substance: SERTRALINE HYDROCHLORIDE
  2. VITAMIN C [Concomitant]
     Active Substance: ASCORBIC ACID
  3. SAM-E [Concomitant]
     Active Substance: ADEMETIONINE
  4. DHEA [Concomitant]
     Active Substance: PRASTERONE
  5. ALA [Concomitant]
  6. RIBOFLAVIN [Concomitant]
     Active Substance: RIBOFLAVIN
  7. MAGNESIUM [Concomitant]
     Active Substance: MAGNESIUM
  8. METHYL B12 [Concomitant]
  9. BACTRIM DS [Suspect]
     Active Substance: SULFAMETHOXAZOLE\TRIMETHOPRIM
     Indication: FURUNCLE
     Dosage: ?          QUANTITY:20 TABLET(S);?
     Route: 048
     Dates: start: 20181207, end: 20181213
  10. VITAMIN D [Concomitant]
     Active Substance: CHOLECALCIFEROL
  11. METHYL FOLATE [Concomitant]
  12. NATURE-THROID [Concomitant]
     Active Substance: THYROID, PORCINE
  13. RECANCOSTAT [Concomitant]
  14. OXYGEN. [Concomitant]
     Active Substance: OXYGEN
  15. NAC [Concomitant]
  16. COQ10 [Concomitant]
     Active Substance: UBIDECARENONE

REACTIONS (11)
  - Heart rate increased [None]
  - Blood pressure decreased [None]
  - Thirst [None]
  - Haematochezia [None]
  - Urticaria [None]
  - Dizziness [None]
  - Fatigue [None]
  - Blood urine present [None]
  - Pyrexia [None]
  - Systemic inflammatory response syndrome [None]
  - Headache [None]

NARRATIVE: CASE EVENT DATE: 20181213
